FAERS Safety Report 10905999 (Version 3)
Quarter: 2015Q3

REPORT INFORMATION
  Report Type: Report from Study
  Country: US (occurrence: US)
  Receive Date: 20150311
  Receipt Date: 20150902
  Transmission Date: 20151125
  Serious: Yes (Death, Other)
  Sender: FDA-Public Use
  Company Number: US-CELGENEUS-USA-2015031669

PATIENT
  Age: 66 Year

DRUGS (2)
  1. DECADRON [Suspect]
     Active Substance: DEXAMETHASONE
     Indication: PLASMA CELL MYELOMA
     Route: 048
     Dates: start: 20130628, end: 20131013
  2. REVLIMID [Suspect]
     Active Substance: LENALIDOMIDE
     Indication: PLASMA CELL MYELOMA
     Dosage: 25 MILLIGRAM
     Route: 048
     Dates: start: 20130628, end: 20131013

REACTIONS (4)
  - Pyuria [Unknown]
  - Atrial fibrillation [Recovered/Resolved]
  - Metastatic malignant melanoma [Fatal]
  - Pneumonia [Unknown]

NARRATIVE: CASE EVENT DATE: 20130917
